FAERS Safety Report 19654790 (Version 1)
Quarter: 2021Q3

REPORT INFORMATION
  Report Type: Spontaneous
  Country: US (occurrence: US)
  Receive Date: 20210804
  Receipt Date: 20210804
  Transmission Date: 20211014
  Serious: Yes (Other)
  Sender: FDA-Public Use
  Company Number: US-009507513-2108USA000553

PATIENT
  Age: 58 Year
  Sex: Female

DRUGS (1)
  1. SIVEXTRO [Suspect]
     Active Substance: TEDIZOLID PHOSPHATE
     Dosage: UNK
     Route: 048

REACTIONS (6)
  - Knee arthroplasty [Unknown]
  - Cellulitis [Unknown]
  - Ligament rupture [Unknown]
  - Loss of consciousness [Unknown]
  - Ill-defined disorder [Unknown]
  - Fall [Unknown]

NARRATIVE: CASE EVENT DATE: 20210728
